FAERS Safety Report 7563395-6 (Version None)
Quarter: 2011Q2

REPORT INFORMATION
  Report Type: 
  Country: None (occurrence: None)
  Receive Date: 20110622
  Receipt Date: 20110614
  Transmission Date: 20111010
  Serious: Yes (Death)
  Sender: FDA-Public Use
  Company Number: A0932113A

PATIENT
  Sex: Female

DRUGS (7)
  1. VITAMIN E [Concomitant]
  2. GREEN TEA CAPSULE [Concomitant]
  3. ZOMETA [Concomitant]
  4. ASCORBIC ACID [Concomitant]
  5. TYKERB [Suspect]
     Dosage: 1000MG PER DAY
     Route: 048
  6. FISH OIL [Concomitant]
  7. CALCIUM CARBONATE [Concomitant]

REACTIONS (1)
  - DEATH [None]
